FAERS Safety Report 9988044 (Version 2)
Quarter: 2014Q1

REPORT INFORMATION
  Report Type: Spontaneous
  Country: US (occurrence: US)
  Receive Date: 20140307
  Receipt Date: 20140307
  Transmission Date: 20141002
  Serious: Yes (Other)
  Sender: FDA-Public Use
  Company Number: US-GE HEALTHCARE MEDICAL DIAGNOSTICS-OSCN-PR-0806S-0335

PATIENT
  Age: 58 Year
  Sex: Female

DRUGS (15)
  1. OMNISCAN [Suspect]
     Indication: NECK PAIN
     Route: 042
     Dates: start: 20060120, end: 20060120
  2. OMNISCAN [Suspect]
     Indication: PAIN IN EXTREMITY
     Route: 042
     Dates: start: 20060710, end: 20060710
  3. OMNISCAN [Suspect]
     Indication: ABDOMINAL PAIN
  4. MAGNEVIST [Suspect]
     Indication: BACK PAIN
     Route: 042
     Dates: start: 19970505, end: 19970505
  5. MAGNEVIST [Suspect]
     Indication: PERONEAL NERVE PALSY
     Route: 042
     Dates: start: 20020701, end: 20020701
  6. MAGNEVIST [Suspect]
     Indication: RADICULOTOMY
     Route: 042
     Dates: start: 20030215, end: 20030215
  7. MAGNEVIST [Suspect]
     Indication: PAIN IN EXTREMITY
     Route: 042
     Dates: start: 20040614, end: 20040614
  8. MAGNEVIST [Suspect]
     Route: 042
     Dates: start: 20040731, end: 20040731
  9. MAGNEVIST [Suspect]
     Route: 042
     Dates: start: 20041005, end: 20041005
  10. MAGNEVIST [Suspect]
     Route: 042
     Dates: start: 20041011, end: 20041011
  11. MAGNEVIST [Suspect]
     Route: 042
     Dates: start: 20050428, end: 20050428
  12. MAGNEVIST [Suspect]
     Route: 042
     Dates: start: 20050728, end: 20050728
  13. MAGNEVIST [Suspect]
     Route: 042
     Dates: start: 20051018, end: 20051018
  14. MAGNEVIST [Suspect]
     Route: 042
     Dates: start: 20051112, end: 20051112
  15. MAGNEVIST [Suspect]
     Route: 042
     Dates: start: 20070615, end: 20070615

REACTIONS (1)
  - Nephrogenic systemic fibrosis [Not Recovered/Not Resolved]
